FAERS Safety Report 8243800-2 (Version None)
Quarter: 2012Q1

REPORT INFORMATION
  Report Type: 
  Country: None (occurrence: None)
  Receive Date: 20120329
  Receipt Date: 20111205
  Transmission Date: 20120608
  Serious: No
  Sender: FDA-Public Use
  Company Number: US-MYLANLABS-2011S1025165

PATIENT
  Age: 58 Year
  Sex: Female

DRUGS (3)
  1. ATENOLOL [Concomitant]
     Indication: BLOOD PRESSURE INCREASED
  2. EMSAM [Suspect]
     Indication: DEPRESSION
     Dosage: Q DAY
     Route: 062
     Dates: start: 20111101
  3. DILANTIN [Concomitant]

REACTIONS (1)
  - ABNORMAL BEHAVIOUR [None]
